FAERS Safety Report 8479935-9 (Version None)
Quarter: 2012Q2

REPORT INFORMATION
  Report Type: 
  Country: None (occurrence: None)
  Receive Date: 20120629
  Receipt Date: 20120620
  Transmission Date: 20120825
  Serious: Yes (Hospitalization)
  Sender: FDA-Public Use
  Company Number: US-ASTRAZENECA-2012SE41696

PATIENT
  Age: 50 Year
  Sex: Female

DRUGS (1)
  1. NEXIUM [Suspect]
     Route: 048

REACTIONS (4)
  - DYSPNOEA [None]
  - ATTENTION DEFICIT/HYPERACTIVITY DISORDER [None]
  - GASTROOESOPHAGEAL REFLUX DISEASE [None]
  - FUNGAL INFECTION [None]
